FAERS Safety Report 10218304 (Version 3)
Quarter: 2014Q2

REPORT INFORMATION
  Report Type: Spontaneous
  Country: US (occurrence: US)
  Receive Date: 20140605
  Receipt Date: 20140619
  Transmission Date: 20141212
  Serious: Yes (Other)
  Sender: FDA-Public Use
  Company Number: US-ASTELLAS-2014US004383

PATIENT
  Age: 70 Year
  Sex: Male

DRUGS (9)
  1. XTANDI [Suspect]
     Indication: PROSTATE CANCER
     Route: 048
     Dates: start: 20140115, end: 2014
  2. AMLODIPINE BESILATE [Concomitant]
     Indication: BLOOD PRESSURE
     Dosage: 1 TABLET, ONCE DAILY
     Route: 048
     Dates: start: 20110428
  3. ATORVASTATIN CALCIUM [Concomitant]
     Indication: PRODUCT USED FOR UNKNOWN INDICATION
     Dosage: 1 TABLET, AT BEDTIME
     Route: 048
     Dates: start: 20131206
  4. FUROSEMIDE [Concomitant]
     Indication: PRODUCT USED FOR UNKNOWN INDICATION
     Route: 048
     Dates: start: 20131206
  5. NEURONTIN [Concomitant]
     Indication: PRODUCT USED FOR UNKNOWN INDICATION
     Dosage: 1 CAPSULE, THRICE DAILY
     Route: 048
     Dates: start: 20140306
  6. METOPROLOL SUCCINATE [Concomitant]
     Indication: PRODUCT USED FOR UNKNOWN INDICATION
     Dosage: 1 TABLET, EVERY 12 HOURS
     Route: 048
     Dates: start: 20131206
  7. MORPHINE SULFATE [Concomitant]
     Indication: PRODUCT USED FOR UNKNOWN INDICATION
     Dosage: 1 TABLET, EVERY 4 HRS, AS NEEDED
     Route: 048
     Dates: start: 20131226
  8. PROCHLORPERAZINE MALEATE [Concomitant]
     Indication: NAUSEA
     Dosage: 1 TABLET, EVERY 6 HRS, AS NEEDED
     Route: 048
     Dates: start: 20140114
  9. AMBIEN [Concomitant]
     Indication: PRODUCT USED FOR UNKNOWN INDICATION
     Dosage: 1 TABLET, AT BED TIME, AS NEEDED
     Route: 048
     Dates: start: 20131223

REACTIONS (12)
  - Diplopia [Unknown]
  - Vision blurred [Unknown]
  - Burning sensation [Unknown]
  - Paraesthesia [Unknown]
  - Pain in extremity [Unknown]
  - Neuropathy peripheral [Unknown]
  - Dizziness [Unknown]
  - Fatigue [Not Recovered/Not Resolved]
  - Muscular weakness [Unknown]
  - Diarrhoea [Unknown]
  - Prostatic specific antigen increased [Unknown]
  - Malignant neoplasm progression [Unknown]
